FAERS Safety Report 25353934 (Version 1)
Quarter: 2025Q2

REPORT INFORMATION
  Report Type: Spontaneous
  Country: CN (occurrence: CN)
  Receive Date: 20250523
  Receipt Date: 20250523
  Transmission Date: 20250716
  Serious: Yes (Other)
  Sender: Kenvue
  Company Number: CN-KENVUE-20250504723

PATIENT

DRUGS (1)
  1. IBUPROFEN [Suspect]
     Active Substance: IBUPROFEN
     Indication: Patent ductus arteriosus
     Route: 048

REACTIONS (9)
  - Off label use [Unknown]
  - Necrotising colitis [Unknown]
  - Bronchopulmonary dysplasia [Unknown]
  - Retinopathy of prematurity [Unknown]
  - Hyperbilirubinaemia [Unknown]
  - Intraventricular haemorrhage [Unknown]
  - Gastrointestinal haemorrhage [Unknown]
  - Feeding intolerance [Unknown]
  - Therapeutic response unexpected [Unknown]
